FAERS Safety Report 5642504-X (Version None)
Quarter: 2008Q1

REPORT INFORMATION
  Report Type: 
  Country: None (occurrence: None)
  Receive Date: 20080228
  Receipt Date: 20080222
  Transmission Date: 20080703
  Serious: Yes (Hospitalization)
  Sender: FDA-Public Use
  Company Number: FR-BAXTER-2007BH007968

PATIENT
  Age: 85 Year
  Sex: Female

DRUGS (18)
  1. EXTRANEAL [Suspect]
     Indication: FLUID OVERLOAD
     Route: 033
  2. DIANEAL PD-1 [Concomitant]
     Indication: PERITONEAL DIALYSIS
     Route: 033
  3. NUTRINEAL [Concomitant]
     Indication: PERITONEAL DIALYSIS
     Route: 033
  4. LASILIX [Concomitant]
  5. ALFACALCIDOL [Concomitant]
  6. NOVONORM [Concomitant]
  7. SUCRALFATE [Concomitant]
  8. TENORMIN [Concomitant]
  9. ALPRESS [Concomitant]
  10. OGAST [Concomitant]
  11. KAYEXALATE [Concomitant]
     Dosage: DOSE UNIT:UNKNOWN
  12. TARDYFERON /GFR/ [Concomitant]
     Dosage: DOSE UNIT:UNKNOWN
  13. EUCALCIC [Concomitant]
     Dosage: DOSE UNIT:UNKNOWN
  14. HYPERIUM [Concomitant]
  15. SODIUM ALGINATE [Concomitant]
     Dosage: DOSE UNIT:UNKNOWN
  16. ATARAX [Concomitant]
  17. ARANESP [Concomitant]
  18. INSULIN [Concomitant]
     Indication: DIABETES MELLITUS
     Dosage: DOSE UNIT:UNKNOWN

REACTIONS (2)
  - DEVICE INTERACTION [None]
  - HYPOGLYCAEMIA [None]
